FAERS Safety Report 23761549 (Version 2)
Quarter: 2024Q2

REPORT INFORMATION
  Report Type: Report from Study
  Country: US (occurrence: US)
  Receive Date: 20240419
  Receipt Date: 20240422
  Transmission Date: 20240716
  Serious: Yes (Hospitalization, Other)
  Sender: FDA-Public Use
  Company Number: US-BAYER-2024A048801

PATIENT
  Age: 75 Year
  Sex: Female
  Weight: 61.224 kg

DRUGS (27)
  1. ADEMPAS [Suspect]
     Active Substance: RIOCIGUAT
     Indication: Pulmonary arterial hypertension
     Dosage: UNK
     Dates: start: 20200402
  2. ADEMPAS [Suspect]
     Active Substance: RIOCIGUAT
     Indication: Pulmonary arterial hypertension
     Dosage: 1.5 MG, TID
     Route: 048
  3. OMEPRAZOLE [Concomitant]
     Active Substance: OMEPRAZOLE
  4. ZOLOFT [Concomitant]
     Active Substance: SERTRALINE HYDROCHLORIDE
  5. ELIQUIS [Concomitant]
     Active Substance: APIXABAN
  6. SINGULAIR [Concomitant]
     Active Substance: MONTELUKAST SODIUM
  7. PEPCID AC [Concomitant]
     Active Substance: FAMOTIDINE
  8. VITAMIN D3 [Concomitant]
     Active Substance: CHOLECALCIFEROL
  9. ALBUTEROL SULFATE [Concomitant]
     Active Substance: ALBUTEROL SULFATE
  10. LASIX [Concomitant]
     Active Substance: FUROSEMIDE
  11. FLONASE ALLERGY RELIEF [Concomitant]
     Active Substance: FLUTICASONE PROPIONATE
  12. TRELEGY ELLIPTA [Concomitant]
     Active Substance: FLUTICASONE FUROATE\UMECLIDINIUM BROMIDE\VILANTEROL TRIFENATATE
  13. HYDROCORTISONE [Concomitant]
     Active Substance: HYDROCORTISONE
  14. PROAIR HFA [Concomitant]
     Active Substance: ALBUTEROL SULFATE
  15. FAMOTIDINE [Concomitant]
     Active Substance: FAMOTIDINE
  16. ALVESCO [Concomitant]
     Active Substance: CICLESONIDE
  17. OXYGEN [Concomitant]
     Active Substance: OXYGEN
  18. DUPIXENT [Concomitant]
     Active Substance: DUPILUMAB
  19. REMODULIN [Concomitant]
     Active Substance: TREPROSTINIL
  20. WATER FOR INJECTION [Concomitant]
     Active Substance: WATER
  21. ACETAMINOPHEN [Concomitant]
     Active Substance: ACETAMINOPHEN
  22. RECLAST [Concomitant]
     Active Substance: ZOLEDRONIC ACID
  23. ASCORBIC ACID [Concomitant]
     Active Substance: ASCORBIC ACID
  24. ACETAMINOPHEN\OXYCODONE HYDROCHLORIDE [Concomitant]
     Active Substance: ACETAMINOPHEN\OXYCODONE HYDROCHLORIDE
  25. MONTELUKAST SODIUM [Concomitant]
     Active Substance: MONTELUKAST SODIUM
  26. VANCOMYCIN HYDROCHLORIDE [Concomitant]
     Active Substance: VANCOMYCIN HYDROCHLORIDE
     Dosage: 125 MG, QID
  27. LITHIUM CARBONATE [Concomitant]
     Active Substance: LITHIUM CARBONATE

REACTIONS (7)
  - Enterocolitis infectious [None]
  - Clostridium difficile colitis [None]
  - Diarrhoea [None]
  - Asthenia [None]
  - Loss of consciousness [None]
  - Weight decreased [None]
  - Fatigue [None]

NARRATIVE: CASE EVENT DATE: 20240101
